FAERS Safety Report 6331181-0 (Version None)
Quarter: 2009Q3

REPORT INFORMATION
  Report Type: 
  Country: None (occurrence: None)
  Receive Date: 20090827
  Receipt Date: 20090820
  Transmission Date: 20100115
  Serious: Yes (Hospitalization, Other)
  Sender: FDA-Public Use
  Company Number: US-AVENTIS-200913059US

PATIENT
  Sex: Male
  Weight: 88.45 kg

DRUGS (2)
  1. LANTUS [Suspect]
     Route: 058
     Dates: start: 19950101
  2. OPTICLIK (INSULIN INJECTION PEN) [Suspect]
     Dates: start: 20060101

REACTIONS (2)
  - BLINDNESS [None]
  - CHOLECYSTECTOMY [None]
